FAERS Safety Report 6134373-9 (Version None)
Quarter: 2009Q1

REPORT INFORMATION
  Report Type: 
  Country: None (occurrence: None)
  Receive Date: 20090327
  Receipt Date: 20090219
  Transmission Date: 20090719
  Serious: No
  Sender: FDA-Public Use
  Company Number: US-BAYER-200915173NA

PATIENT
  Age: 58 Year

DRUGS (1)
  1. EOVIST [Suspect]
     Indication: NUCLEAR MAGNETIC RESONANCE IMAGING
     Dosage: ^FULL DOSE^
     Dates: start: 20090130, end: 20090130

REACTIONS (2)
  - FEELING HOT [None]
  - TENSION [None]
